FAERS Safety Report 4947926-8 (Version None)
Quarter: 2006Q1

REPORT INFORMATION
  Report Type: 
  Country: None (occurrence: None)
  Receive Date: 20060314
  Receipt Date: 20060301
  Transmission Date: 20060701
  Serious: Yes (Other)
  Sender: FDA-Public Use
  Company Number: 2005133697

PATIENT
  Age: 13 Year
  Sex: Male

DRUGS (1)
  1. GEODON [Suspect]
     Indication: ILL-DEFINED DISORDER

REACTIONS (4)
  - MACULOPATHY [None]
  - RETINAL CYST [None]
  - RETINAL DISORDER [None]
  - VISUAL ACUITY REDUCED [None]
